FAERS Safety Report 4936721-1 (Version None)
Quarter: 2006Q1

REPORT INFORMATION
  Report Type: 
  Country: None (occurrence: None)
  Receive Date: 20060302
  Receipt Date: 20060222
  Transmission Date: 20060701
  Serious: Yes (Hospitalization)
  Sender: FDA-Public Use
  Company Number: 430003E06ITA

PATIENT
  Age: 35 Year
  Sex: Female

DRUGS (4)
  1. NOVANTRONE [Suspect]
     Indication: ACUTE PROMYELOCYTIC LEUKAEMIA
  2. ATRA (ATRACURIUM BESILATE) [Suspect]
     Indication: ACUTE PROMYELOCYTIC LEUKAEMIA
  3. CHEMOTHERAPEUTIC AGENTS [Suspect]
     Indication: ACUTE PROMYELOCYTIC LEUKAEMIA
  4. MERCAPTOPURINE [Suspect]
     Indication: ACUTE PROMYELOCYTIC LEUKAEMIA

REACTIONS (4)
  - CHLOROMA [None]
  - DISEASE PROGRESSION [None]
  - LEUKAEMIA RECURRENT [None]
  - MASTOIDITIS [None]
